FAERS Safety Report 4635802-X (Version None)
Quarter: 2005Q2

REPORT INFORMATION
  Report Type: 
  Country: None (occurrence: None)
  Receive Date: 20050414
  Receipt Date: 20050329
  Transmission Date: 20051028
  Serious: Yes (Other)
  Sender: FDA-Public Use
  Company Number: USA-2003-0009608

PATIENT
  Age: 55 Year
  Sex: Male

DRUGS (5)
  1. OXYCONTIN [Suspect]
     Indication: PAIN
     Dosage: 40 MG, BID, ORAL
     Route: 048
  2. ELAVIL [Concomitant]
  3. ALPRAZOLAM [Concomitant]
  4. IBUPROFEN [Concomitant]
  5. EFFEXOR [Concomitant]

REACTIONS (26)
  - ANXIETY [None]
  - ARTHRALGIA [None]
  - BACK PAIN [None]
  - CHILLS [None]
  - DEPRESSION [None]
  - DISTURBANCE IN ATTENTION [None]
  - DRUG DEPENDENCE [None]
  - DRUG WITHDRAWAL SYNDROME [None]
  - EJACULATION DELAYED [None]
  - FEELING ABNORMAL [None]
  - GINGIVAL PAIN [None]
  - HEADACHE [None]
  - HYPERHIDROSIS [None]
  - INADEQUATE ANALGESIA [None]
  - JOINT RANGE OF MOTION DECREASED [None]
  - MUSCLE SPASMS [None]
  - NECK PAIN [None]
  - PAIN [None]
  - PAIN IN EXTREMITY [None]
  - PERIARTHRITIS [None]
  - PYREXIA [None]
  - SENSITIVITY OF TEETH [None]
  - SENSORY DISTURBANCE [None]
  - TENDERNESS [None]
  - TESTICULAR PAIN [None]
  - THIRST [None]
